FAERS Safety Report 10237668 (Version 2)
Quarter: 2014Q2

REPORT INFORMATION
  Report Type: Spontaneous
  Country: US (occurrence: US)
  Receive Date: 20140616
  Receipt Date: 20140630
  Transmission Date: 20141212
  Serious: Yes (Other)
  Sender: FDA-Public Use
  Company Number: US-BEH-2014043118

PATIENT
  Age: 79 Year
  Sex: Male

DRUGS (1)
  1. IVIG [Suspect]
     Indication: GUILLAIN-BARRE SYNDROME

REACTIONS (1)
  - Drug ineffective [Recovered/Resolved]
